FAERS Safety Report 7903239-3 (Version None)
Quarter: 2011Q4

REPORT INFORMATION
  Report Type: 
  Country: None (occurrence: None)
  Receive Date: 20111109
  Receipt Date: 20111102
  Transmission Date: 20120403
  Serious: Yes (Hospitalization)
  Sender: FDA-Public Use
  Company Number: DK-JNJFOC-20110907822

PATIENT
  Sex: Male
  Weight: 67 kg

DRUGS (24)
  1. DOXORUBICIN HCL [Suspect]
     Route: 042
     Dates: start: 20110516
  2. CYCLOPHOSPHAMIDE [Suspect]
     Route: 042
     Dates: start: 20110516
  3. NEUPOGEN [Suspect]
     Route: 058
     Dates: start: 20110414
  4. NEUPOGEN [Suspect]
     Route: 058
     Dates: start: 20110314
  5. PREDNISONE [Suspect]
     Route: 048
     Dates: start: 20110411
  6. PREDNISONE [Suspect]
     Route: 048
     Dates: start: 20110516
  7. VINCRISTINE [Suspect]
     Route: 042
     Dates: start: 20110411
  8. DOXORUBICIN HCL [Suspect]
     Route: 042
     Dates: start: 20110411
  9. NEUPOGEN [Suspect]
     Indication: DIFFUSE LARGE B-CELL LYMPHOMA
     Route: 058
     Dates: start: 20110602
  10. SULFAMETHOXAZOL [Concomitant]
     Indication: INFECTION PROPHYLAXIS
     Route: 048
     Dates: start: 20110313, end: 20110605
  11. DOXORUBICIN HCL [Suspect]
     Route: 042
     Dates: start: 20110530
  12. NEUPOGEN [Suspect]
     Route: 058
     Dates: start: 20110519
  13. RITUXIMAB [Suspect]
     Route: 042
     Dates: start: 20110516
  14. RITUXIMAB [Suspect]
     Route: 042
     Dates: start: 20110411
  15. CYCLOPHOSPHAMIDE [Suspect]
     Route: 042
     Dates: start: 20110411
  16. CYCLOPHOSPHAMIDE [Suspect]
     Route: 042
     Dates: start: 20110530
  17. PREDNISONE [Suspect]
     Indication: DIFFUSE LARGE B-CELL LYMPHOMA
     Route: 048
     Dates: start: 20110604
  18. PREDNISONE [Suspect]
     Route: 048
     Dates: start: 20110311
  19. VINCRISTINE [Suspect]
     Indication: DIFFUSE LARGE B-CELL LYMPHOMA
     Route: 042
     Dates: start: 20110311
  20. DOXORUBICIN HCL [Suspect]
     Indication: DIFFUSE LARGE B-CELL LYMPHOMA
     Route: 042
     Dates: start: 20110311
  21. RITUXIMAB [Suspect]
     Indication: DIFFUSE LARGE B-CELL LYMPHOMA
     Dosage: RECEIVED 3 EXTRA
     Route: 042
     Dates: start: 20110418
  22. RITUXIMAB [Suspect]
     Route: 042
     Dates: start: 20110311
  23. CYCLOPHOSPHAMIDE [Suspect]
     Indication: DIFFUSE LARGE B-CELL LYMPHOMA
     Route: 042
     Dates: start: 20110311
  24. RITUXIMAB [Suspect]
     Route: 042
     Dates: start: 20110530

REACTIONS (4)
  - DIARRHOEA [None]
  - PNEUMONIA [None]
  - GASTRIC ULCER [None]
  - FEBRILE NEUTROPENIA [None]
